FAERS Safety Report 24120616 (Version 1)
Quarter: 2024Q3

REPORT INFORMATION
  Report Type: Spontaneous
  Country: US (occurrence: None)
  Receive Date: 20240718
  Receipt Date: 20240718
  Transmission Date: 20241017
  Serious: Yes (Life-Threatening, Other)
  Sender: Public
  Company Number: None

PATIENT
  Age: 36 Year
  Sex: Male
  Weight: 87.75 kg

DRUGS (1)
  1. QUETIAPINE FUMARATE [Suspect]
     Active Substance: QUETIAPINE FUMARATE

REACTIONS (5)
  - Product prescribing issue [None]
  - Product use in unapproved indication [None]
  - Victim of crime [None]
  - Victim of abuse [None]
  - Suicidal ideation [None]

NARRATIVE: CASE EVENT DATE: 20240715
